FAERS Safety Report 5216544-9 (Version None)
Quarter: 2007Q1

REPORT INFORMATION
  Report Type: 
  Country: None (occurrence: None)
  Receive Date: 20070118
  Receipt Date: 20070105
  Transmission Date: 20070707
  Serious: No
  Sender: FDA-Public Use
  Company Number: NALJP-06-0600

PATIENT
  Age: 28 Year
  Sex: Female

DRUGS (4)
  1. NAROPIN (ROPIVACAINE HCL) INJECTION (ROPIVACINE [Suspect]
     Indication: EPIDURAL ANAESTHESIA
     Dosage: EPIDURAL
     Route: 008
     Dates: start: 20050301
  2. NAROPIN (ROPIVACAINE HCL) INJECTION (ROPIVACINE [Suspect]
     Indication: SPINAL ANAESTHESIA
     Dosage: EPIDURAL
     Route: 008
     Dates: start: 20050301
  3. MARCAINE [Suspect]
     Indication: EPIDURAL ANAESTHESIA
     Dosage: INTRATHECAL
     Route: 037
     Dates: start: 20050301
  4. MARCAINE [Suspect]
     Indication: SPINAL ANAESTHESIA
     Dosage: INTRATHECAL
     Route: 037
     Dates: start: 20050301

REACTIONS (3)
  - ANAESTHETIC COMPLICATION [None]
  - CAUDA EQUINA SYNDROME [None]
  - NEUROTOXICITY [None]
